FAERS Safety Report 21904720 (Version 6)
Quarter: 2024Q3

REPORT INFORMATION
  Report Type: Report from Study
  Country: JP (occurrence: JP)
  Receive Date: 20230124
  Receipt Date: 20240926
  Transmission Date: 20241017
  Serious: Yes (Other)
  Sender: ELI LILLY AND CO
  Company Number: JP-ELI_LILLY_AND_COMPANY-JP202301007306AA

PATIENT
  Age: 28 Year
  Sex: Male
  Weight: 69 kg

DRUGS (3)
  1. RETEVMO [Suspect]
     Active Substance: SELPERCATINIB
     Indication: Medullary thyroid cancer
     Dosage: 320 MG, UNKNOWN
     Route: 048
     Dates: start: 20221024, end: 20221111
  2. RETEVMO [Suspect]
     Active Substance: SELPERCATINIB
     Dosage: 320 MG, UNKNOWN
     Route: 048
     Dates: start: 20221114, end: 20221119
  3. RETEVMO [Suspect]
     Active Substance: SELPERCATINIB
     Dosage: 160 MG, UNKNOWN
     Route: 048
     Dates: start: 20230104, end: 20230112

REACTIONS (2)
  - Liver disorder [Recovering/Resolving]
  - Liver disorder [Recovering/Resolving]

NARRATIVE: CASE EVENT DATE: 20221119
